FAERS Safety Report 21892983 (Version 2)
Quarter: 2023Q1

REPORT INFORMATION
  Report Type: Spontaneous
  Country: JP (occurrence: JP)
  Receive Date: 20230120
  Receipt Date: 20230210
  Transmission Date: 20230417
  Serious: Yes (Hospitalization, Other)
  Sender: FDA-Public Use
  Company Number: JP-Teva Takeda Yakuhin-2022-JP-002745J

PATIENT
  Age: 81 Year
  Sex: Male

DRUGS (10)
  1. ESTAZOLAM [Suspect]
     Active Substance: ESTAZOLAM
     Indication: Mental disorder
     Dosage: 2 MILLIGRAM, QD BEFORE BEDTIME
     Route: 048
  2. CERCINE [Suspect]
     Active Substance: DIAZEPAM
     Indication: Product used for unknown indication
     Dosage: DOSAGE IS UNKNOWN
     Route: 048
  3. ALPRAZOLAM [Suspect]
     Active Substance: ALPRAZOLAM
     Indication: Mental disorder
     Dosage: 0.4 MILLIGRAM, TID IN THE MORNING, AFTERNOON AND EVENING
     Route: 048
  4. LEVOFLOXACIN [Concomitant]
     Active Substance: LEVOFLOXACIN
     Dosage: DOSAGE IS UNKNOWN
     Route: 048
     Dates: start: 20230117
  5. LOXOPROFEN SODIUM [Concomitant]
     Active Substance: LOXOPROFEN SODIUM
     Dosage: DOSAGE IS UNKNOWN
     Route: 065
     Dates: end: 202110
  6. KETOPROFEN [Concomitant]
     Active Substance: KETOPROFEN
     Dosage: DOSAGE IS UNKNOWN
     Route: 065
     Dates: end: 202110
  7. CLOXAZOLAM [Concomitant]
     Active Substance: CLOXAZOLAM
     Dosage: DOSAGE IS UNKNOWN
     Route: 048
  8. ETHYL LOFLAZEPATE [Concomitant]
     Active Substance: ETHYL LOFLAZEPATE
     Dosage: DOSAGE IS UNKNOWN
     Route: 048
  9. CLOTIAZEPAM [Concomitant]
     Active Substance: CLOTIAZEPAM
     Dosage: DOSAGE IS UNKNOWN
     Route: 048
  10. TOFISOPAM [Concomitant]
     Active Substance: TOFISOPAM
     Dosage: DOSAGE IS UNKNOWN

REACTIONS (18)
  - Bladder cancer [Recovered/Resolved]
  - Abdominal pain upper [Unknown]
  - Cystitis [Unknown]
  - Urethral pain [Unknown]
  - Dry mouth [Unknown]
  - Insomnia [Unknown]
  - Physical deconditioning [Unknown]
  - Chest discomfort [Unknown]
  - Vomiting [Unknown]
  - Decreased appetite [Unknown]
  - Pollakiuria [Unknown]
  - Erythema [Unknown]
  - Palpitations [Unknown]
  - Nausea [Unknown]
  - Somnolence [Unknown]
  - Dizziness [Unknown]
  - Dizziness [Unknown]
  - Therapeutic product effect decreased [Unknown]

NARRATIVE: CASE EVENT DATE: 20200301
